FAERS Safety Report 8629435 (Version 3)
Quarter: 2013Q4

REPORT INFORMATION
  Report Type: Spontaneous
  Country: US (occurrence: US)
  Receive Date: 20120622
  Receipt Date: 20131204
  Transmission Date: 20140711
  Serious: No
  Sender: FDA-Public Use
  Company Number: US-ASTRAZENECA-2012SE35779

PATIENT
  Age: 45 Year
  Sex: Female
  Weight: 123.4 kg

DRUGS (16)
  1. NEXIUM [Suspect]
     Indication: GASTROOESOPHAGEAL REFLUX DISEASE
     Route: 048
     Dates: start: 2009
  2. NEXIUM [Suspect]
     Indication: GASTROOESOPHAGEAL REFLUX DISEASE
     Route: 048
     Dates: start: 20110601
  3. PRILOSEC [Suspect]
     Indication: GASTROOESOPHAGEAL REFLUX DISEASE
     Route: 065
  4. PROTONIX [Concomitant]
     Indication: GASTROOESOPHAGEAL REFLUX DISEASE
  5. PREVACID [Concomitant]
     Indication: GASTROOESOPHAGEAL REFLUX DISEASE
  6. TUMS [Concomitant]
     Indication: GASTROOESOPHAGEAL REFLUX DISEASE
  7. ALKA SELTZER [Concomitant]
     Indication: GASTROOESOPHAGEAL REFLUX DISEASE
  8. PEPTOBISMOL [Concomitant]
     Indication: GASTROOESOPHAGEAL REFLUX DISEASE
  9. ROLAIDS [Concomitant]
     Indication: GASTROOESOPHAGEAL REFLUX DISEASE
  10. AMOXICILLIN [Concomitant]
  11. BIAXIN [Concomitant]
  12. TIZANIDINE [Concomitant]
  13. LORTAB [Concomitant]
  14. FERROUS SULFATE [Concomitant]
  15. LASIX [Concomitant]
  16. POTCHLORIDE [Concomitant]

REACTIONS (4)
  - Osteoporosis [Unknown]
  - Multiple fractures [Unknown]
  - Arthritis [Unknown]
  - Joint swelling [Unknown]
